FAERS Safety Report 4503974-3 (Version None)
Quarter: 2004Q3

REPORT INFORMATION
  Report Type: 
  Country: None (occurrence: None)
  Receive Date: 20040927
  Receipt Date: 20040816
  Transmission Date: 20050211
  Serious: No
  Sender: FDA-Public Use
  Company Number: USA040875683

PATIENT
  Age: 41 Year
  Sex: Female
  Weight: 84 kg

DRUGS (4)
  1. STRATTERA [Suspect]
     Dosage: 80 MG/DAILY
     Dates: start: 20040810
  2. ZOLOFT [Concomitant]
  3. SINGULAIR (MONTELUKAST) [Concomitant]
  4. ALLEGRA [Concomitant]

REACTIONS (3)
  - COLD SWEAT [None]
  - IRRITABILITY [None]
  - SOMNOLENCE [None]
